FAERS Safety Report 4426917-X (Version None)
Quarter: 2004Q3

REPORT INFORMATION
  Report Type: 
  Country: None (occurrence: None)
  Receive Date: 20040811
  Receipt Date: 20040804
  Transmission Date: 20050211
  Serious: Yes (Life-Threatening)
  Sender: FDA-Public Use
  Company Number: 2004-07-0953

PATIENT
  Age: 60 Year
  Sex: Female
  Weight: 57.1532 kg

DRUGS (5)
  1. PROVENTIL-HFA [Suspect]
     Indication: ASTHMA
     Dosage: ORAL AER INH
     Route: 055
     Dates: start: 19971201, end: 20010101
  2. PROVENTIL-HFA [Suspect]
     Indication: ASTHMA
     Dosage: ORAL AER INH
     Route: 055
     Dates: start: 19970101, end: 20040701
  3. DILTIAZEM [Concomitant]
  4. SYNTHROID [Concomitant]
  5. HYDROCHLOROTHIAZIDE [Concomitant]

REACTIONS (7)
  - DYSPNOEA [None]
  - NASAL CONGESTION [None]
  - NASAL OEDEMA [None]
  - OROPHARYNGEAL SWELLING [None]
  - PHARMACEUTICAL PRODUCT COMPLAINT [None]
  - RHINORRHOEA [None]
  - THERAPY NON-RESPONDER [None]
